FAERS Safety Report 13613090 (Version 4)
Quarter: 2017Q3

REPORT INFORMATION
  Report Type: Spontaneous
  Country: US (occurrence: US)
  Receive Date: 20170605
  Receipt Date: 20170920
  Transmission Date: 20171127
  Serious: Yes (Life-Threatening, Hospitalization, Other)
  Sender: FDA-Public Use
  Company Number: US-STRONGBRIDGE BIOPHARMA-SR-KEV-2017-025

PATIENT
  Sex: Male

DRUGS (4)
  1. POTASSIUM CL [Concomitant]
     Active Substance: POTASSIUM CHLORIDE
     Indication: PRODUCT USED FOR UNKNOWN INDICATION
  2. KEVEYIS [Suspect]
     Active Substance: DICHLORPHENAMIDE
     Indication: GLYCOGEN STORAGE DISEASE TYPE IV
  3. KEVEYIS [Suspect]
     Active Substance: DICHLORPHENAMIDE
     Indication: FAMILIAL PERIODIC PARALYSIS
     Route: 048
  4. KLOR-CON/EF [Concomitant]
     Active Substance: POTASSIUM BICARBONATE
     Indication: FAMILIAL PERIODIC PARALYSIS
     Dosage: 3 DOSAGE FORMS PER DAY BUT WAS TAKEN AS NEEDED

REACTIONS (4)
  - Dyspnoea [Unknown]
  - Disease progression [Unknown]
  - Asthenia [Unknown]
  - Chronic kidney disease [Not Recovered/Not Resolved]

NARRATIVE: CASE EVENT DATE: 2017
